FAERS Safety Report 9284207 (Version 1)
Quarter: 2013Q2

REPORT INFORMATION
  Report Type: Spontaneous
  Country: US (occurrence: US)
  Receive Date: 20130510
  Receipt Date: 20130510
  Transmission Date: 20140414
  Serious: No
  Sender: FDA-Public Use
  Company Number: US-COVIDIEN/TYCO HEALTHCARE/MALLINCKRODT-T201301589

PATIENT
  Age: 71 Year
  Sex: Female
  Weight: 75.74 kg

DRUGS (18)
  1. FENTANYL TRANSDERMAL SYSTEM [Suspect]
     Indication: NECK PAIN
     Dosage: 50 MCG/HR Q 3 DAYS
     Dates: start: 201302
  2. FENTANYL TRANSDERMAL SYSTEM [Suspect]
     Indication: MUSCULOSKELETAL PAIN
  3. FENTANYL TRANSDERMAL SYSTEM [Suspect]
     Indication: ARTHRALGIA
  4. FENTANYL [Concomitant]
     Dosage: UNK
     Route: 062
     Dates: start: 2012, end: 201302
  5. HYDROCHLOROTHIAZIDE [Concomitant]
     Indication: FLUID RETENTION
     Dosage: UNK
  6. LOTREL [Concomitant]
     Indication: BLOOD PRESSURE
     Dosage: UNK
  7. PERCOCET                           /00446701/ [Concomitant]
     Indication: PAIN
     Dosage: UNK
  8. POTASSIUM CHLORIDE [Concomitant]
     Indication: SUPPLEMENTATION THERAPY
     Dosage: UNK
  9. TRICOR                             /00090101/ [Concomitant]
     Indication: BLOOD CHOLESTEROL INCREASED
     Dosage: UNK
  10. AMBIEN CR [Concomitant]
     Indication: SLEEP DISORDER
     Dosage: UNK
  11. NEXIUM                             /01479302/ [Concomitant]
     Indication: GASTROOESOPHAGEAL REFLUX DISEASE
     Dosage: UNK
  12. PREMARIN [Concomitant]
     Indication: HORMONE REPLACEMENT THERAPY
     Dosage: UNK
  13. XANAX [Concomitant]
     Indication: ANXIETY
     Dosage: UNK
  14. SKELAXIN                           /00611501/ [Concomitant]
     Indication: MUSCLE RELAXANT THERAPY
     Dosage: UNK
  15. ARICEPT [Concomitant]
     Indication: AMNESIA
     Dosage: UNK
  16. TOPROL XL [Concomitant]
     Indication: BLOOD PRESSURE
     Dosage: UNK
  17. SULPHASALAZINE [Concomitant]
     Indication: DIVERTICULITIS
     Dosage: UNK
  18. SPIRONOLACTONE [Concomitant]
     Indication: BLOOD PRESSURE
     Dosage: UNK

REACTIONS (3)
  - Application site pain [Not Recovered/Not Resolved]
  - Application site erythema [Not Recovered/Not Resolved]
  - Application site pruritus [Not Recovered/Not Resolved]
